FAERS Safety Report 8822525 (Version 1)
Quarter: 2012Q4

REPORT INFORMATION
  Report Type: 
  Country: GB (occurrence: GB)
  Receive Date: 20121003
  Receipt Date: 20121003
  Transmission Date: 20130627
  Serious: Yes (Other)
  Sender: FDA-Public Use
  Company Number: GB-PFIZER INC-2012238618

PATIENT

DRUGS (6)
  1. DOXORUBICIN [Suspect]
     Dosage: 36.6 mg/m2 Liposome Injection
     Route: 042
  2. VELCADE [Suspect]
     Dosage: UNK
     Route: 065
  3. PREDNISONE [Suspect]
     Dosage: 200 mg, UNK
     Route: 065
  4. ETOPOSIDE [Suspect]
     Dosage: 184 mg, UNK
     Route: 065
  5. VINCRISTINE [Suspect]
     Dosage: UNK
     Route: 065
  6. RITUXIMAB [Suspect]
     Dosage: 664 mg, UNK
     Route: 065

REACTIONS (3)
  - Febrile neutropenia [Unknown]
  - Neuropathy peripheral [Unknown]
  - Neuralgia [Unknown]
